FAERS Safety Report 23495399 (Version 1)
Quarter: 2024Q1

REPORT INFORMATION
  Report Type: Spontaneous
  Country: US (occurrence: US)
  Receive Date: 20240207
  Receipt Date: 20240207
  Transmission Date: 20240410
  Serious: No
  Sender: FDA-Public Use
  Company Number: US-PFIZER INC-202400034126

PATIENT
  Age: 70 Year
  Sex: Male
  Weight: 62.6 kg

DRUGS (1)
  1. PAXLOVID [Suspect]
     Active Substance: NIRMATRELVIR\RITONAVIR
     Indication: COVID-19 treatment
     Dosage: (TWO 150 MILLIGRAMS NIRMATRELVIR AND ONE 100 MILLIGRAMS RITONAVIR), 2X/DAY
     Route: 048
     Dates: start: 20240127

REACTIONS (3)
  - Oral pain [Unknown]
  - Swelling face [Unknown]
  - Oral pain [Unknown]
